FAERS Safety Report 11309231 (Version 1)
Quarter: 2015Q3

REPORT INFORMATION
  Report Type: Spontaneous
  Country: JP (occurrence: JP)
  Receive Date: 20150724
  Receipt Date: 20150724
  Transmission Date: 20151125
  Serious: Yes (Death, Other)
  Sender: FDA-Public Use
  Company Number: JP-SA-2015SA107043

PATIENT
  Age: 39 Year
  Sex: Female
  Weight: 52 kg

DRUGS (10)
  1. 5-FU [Concomitant]
     Active Substance: FLUOROURACIL
     Dosage: CONTINUOUS INFUSION 3630 MG/BODY/D1-2 (2389.7 MG/M2/D1-2)
     Dates: start: 20140618, end: 20140710
  2. LEVOFOLINATE [Suspect]
     Active Substance: LEVOLEUCOVORIN CALCIUM
     Indication: PANCREATIC CARCINOMA
     Route: 041
     Dates: start: 20140618, end: 20140618
  3. GEMCITABINE [Concomitant]
     Active Substance: GEMCITABINE\GEMCITABINE HYDROCHLORIDE
     Indication: PANCREATIC CARCINOMA
  4. CAMPTO [Suspect]
     Active Substance: IRINOTECAN
     Indication: PANCREATIC CARCINOMA
     Dosage: 220MG/BODY (144.8MG/M2)
     Route: 041
     Dates: start: 20140710, end: 20140710
  5. TARCEVA [Concomitant]
     Active Substance: ERLOTINIB HYDROCHLORIDE
     Indication: PANCREATIC CARCINOMA
  6. ELPLAT [Suspect]
     Active Substance: OXALIPLATIN
     Indication: PANCREATIC CARCINOMA
     Dosage: ROUTE: INTRAVENOUS INFUSION; 120 MG/BODY (79MG/M2)
     Route: 041
     Dates: start: 20140710, end: 20140710
  7. CAMPTO [Suspect]
     Active Substance: IRINOTECAN
     Indication: PANCREATIC CARCINOMA
     Dosage: 220MG/BODY (144.8MG/M2)
     Route: 041
     Dates: start: 20140618, end: 20140618
  8. ELPLAT [Suspect]
     Active Substance: OXALIPLATIN
     Indication: PANCREATIC CARCINOMA
     Dosage: ROUTE: INTRAVENOUS INFUSION; 120 MG/BODY (79MG/M2)
     Route: 041
     Dates: start: 20140618, end: 20140618
  9. TS-1 [Concomitant]
     Active Substance: GIMERACIL\OTERACIL\TEGAFUR
     Indication: PANCREATIC CARCINOMA
  10. LEVOFOLINATE [Suspect]
     Active Substance: LEVOLEUCOVORIN CALCIUM
     Indication: PANCREATIC CARCINOMA
     Route: 041
     Dates: start: 20140710, end: 20140710

REACTIONS (9)
  - Neutrophil count decreased [Unknown]
  - Nausea [Unknown]
  - Fatigue [Unknown]
  - Haemoglobin decreased [Unknown]
  - Vomiting [Unknown]
  - Cerebrovascular accident [Fatal]
  - Decreased appetite [Unknown]
  - Diarrhoea [Unknown]
  - White blood cell count decreased [Unknown]

NARRATIVE: CASE EVENT DATE: 20140703
